FAERS Safety Report 21595363 (Version 8)
Quarter: 2023Q2

REPORT INFORMATION
  Report Type: Report from Study
  Country: US (occurrence: US)
  Receive Date: 20221115
  Receipt Date: 20230529
  Transmission Date: 20230721
  Serious: No
  Sender: FDA-Public Use
  Company Number: US-002147023-NVSC2022US252855

PATIENT
  Sex: Female

DRUGS (1)
  1. COSENTYX [Suspect]
     Active Substance: SECUKINUMAB
     Indication: Psoriatic arthropathy
     Dosage: 150 MG, QW
     Route: 058

REACTIONS (13)
  - Injection site reaction [Recovered/Resolved]
  - Menopausal symptoms [Unknown]
  - Rash macular [Unknown]
  - Weight increased [Unknown]
  - Sleep apnoea syndrome [Unknown]
  - Headache [Unknown]
  - Nasopharyngitis [Recovering/Resolving]
  - Injection site bruising [Unknown]
  - Injection site rash [Unknown]
  - Injection site erythema [Recovered/Resolved]
  - Blood testosterone decreased [Unknown]
  - Fatigue [Unknown]
  - Arthritis [Unknown]
